FAERS Safety Report 7246696-0 (Version None)
Quarter: 2011Q1

REPORT INFORMATION
  Report Type: 
  Country: None (occurrence: None)
  Receive Date: 20110127
  Receipt Date: 20090402
  Transmission Date: 20110831
  Serious: No
  Sender: FDA-Public Use
  Company Number: 2009BI010492

PATIENT
  Age: 63 Year
  Sex: Female

DRUGS (3)
  1. ASPIRIN [Concomitant]
     Indication: HYPERTENSION
  2. TYSABRI [Suspect]
     Indication: MULTIPLE SCLEROSIS
     Route: 042
     Dates: start: 20090122
  3. METOPROLOL [Concomitant]
     Indication: HYPERTENSION

REACTIONS (6)
  - MUSCULOSKELETAL DISORDER [None]
  - FATIGUE [None]
  - GAIT DISTURBANCE [None]
  - BALANCE DISORDER [None]
  - MOBILITY DECREASED [None]
  - ASTHENIA [None]
